FAERS Safety Report 5327053-0 (Version None)
Quarter: 2007Q2

REPORT INFORMATION
  Report Type: 
  Country: None (occurrence: None)
  Receive Date: 20070517
  Receipt Date: 20070509
  Transmission Date: 20071010
  Serious: Yes (Other)
  Sender: FDA-Public Use
  Company Number: PHEH2007US07151

PATIENT
  Age: 64 Year
  Sex: Male

DRUGS (1)
  1. TEKTURNA [Suspect]
     Indication: HYPERTENSION
     Dosage: 300 MG, QD
     Dates: end: 20070507

REACTIONS (5)
  - CONSTIPATION [None]
  - MALAISE [None]
  - NASAL CONGESTION [None]
  - RECTAL HAEMORRHAGE [None]
  - SKIN TIGHTNESS [None]
